FAERS Safety Report 10443760 (Version 4)
Quarter: 2014Q4

REPORT INFORMATION
  Report Type: Report from Study
  Country: US (occurrence: US)
  Receive Date: 20140910
  Receipt Date: 20141215
  Transmission Date: 20150528
  Serious: Yes (Other)
  Sender: FDA-Public Use
  Company Number: US-AMGEN INC.-USASP2014067843

PATIENT
  Age: 47 Year
  Sex: Male

DRUGS (4)
  1. PREDNISONE. [Suspect]
     Active Substance: PREDNISONE
     Indication: PRODUCT USED FOR UNKNOWN INDICATION
     Dosage: UNK
     Route: 065
  2. ENBREL [Suspect]
     Active Substance: ETANERCEPT
     Indication: PSORIASIS
  3. METHOTREXATE [Suspect]
     Active Substance: METHOTREXATE
     Indication: PRODUCT USED FOR UNKNOWN INDICATION
     Dosage: UNK
     Route: 065
  4. ENBREL [Suspect]
     Active Substance: ETANERCEPT
     Indication: RHEUMATOID ARTHRITIS
     Dosage: 50 MG, QWK
     Route: 065
     Dates: start: 20140328

REACTIONS (15)
  - Staphylococcal skin infection [Unknown]
  - Drug ineffective [Not Recovered/Not Resolved]
  - Arthralgia [Not Recovered/Not Resolved]
  - Arthritis [Not Recovered/Not Resolved]
  - Rheumatoid arthritis [Unknown]
  - Limb discomfort [Not Recovered/Not Resolved]
  - Abdominal discomfort [Unknown]
  - Muscle spasms [Not Recovered/Not Resolved]
  - Arthropathy [Not Recovered/Not Resolved]
  - Rash generalised [Recovering/Resolving]
  - Still^s disease adult onset [Unknown]
  - Malaise [Not Recovered/Not Resolved]
  - Swelling [Recovering/Resolving]
  - Drug intolerance [Not Recovered/Not Resolved]
  - Dry mouth [Recovering/Resolving]

NARRATIVE: CASE EVENT DATE: 2014
